FAERS Safety Report 9885693 (Version 1)
Quarter: 2014Q1

REPORT INFORMATION
  Report Type: Not Available
  Country: GB (occurrence: GB)
  Receive Date: 20140210
  Receipt Date: 20140210
  Transmission Date: 20141002
  Serious: Yes (Other)
  Sender: FDA-Public Use
  Company Number: GB-IAC JAPAN XML-GBR-2014-0017033

PATIENT
  Age: 58 Year
  Sex: Female
  Weight: 114.5 kg

DRUGS (11)
  1. BUPRENORPHINE [Suspect]
     Indication: PRODUCT USED FOR UNKNOWN INDICATION
     Dosage: UNK
     Route: 062
     Dates: start: 20140123
  2. CARBOMER [Concomitant]
     Dosage: UNK
     Dates: start: 20140115
  3. CLENIL MODULITE [Concomitant]
     Dosage: UNK
     Dates: start: 20130925
  4. ENALAPRIL [Concomitant]
     Dosage: UNK
     Dates: start: 20131008
  5. ESOMEPRAZOL                        /01479301/ [Concomitant]
     Dosage: UNK
     Dates: start: 20131012
  6. IBUPROFEN [Concomitant]
     Dosage: UNK
     Dates: start: 20131008
  7. PREGABALIN [Concomitant]
     Dosage: UNK
     Dates: start: 20131112
  8. SALBUTAMOL [Concomitant]
     Dosage: UNK
     Dates: start: 20131212
  9. SERTRALIN                          /01011401/ [Concomitant]
     Dosage: UNK
     Dates: start: 20131202
  10. SERTRALIN                          /01011401/ [Concomitant]
     Dosage: UNK
     Dates: start: 20130925, end: 20131106
  11. SIMVADOR [Concomitant]
     Dosage: UNK
     Dates: start: 20131016

REACTIONS (2)
  - Application site scar [Not Recovered/Not Resolved]
  - Dermatitis allergic [Not Recovered/Not Resolved]
